FAERS Safety Report 5804606-4 (Version None)
Quarter: 2008Q3

REPORT INFORMATION
  Report Type: 
  Country: None (occurrence: None)
  Receive Date: 20080707
  Receipt Date: 20080707
  Transmission Date: 20090109
  Serious: Yes (Hospitalization)
  Sender: FDA-Public Use
  Company Number: None

PATIENT
  Sex: Female
  Weight: 119.75 kg

DRUGS (4)
  1. BEVACIZUMAB [Suspect]
     Dosage: 590 MG
     Dates: end: 20080624
  2. LEUCOVORIN CALCIUM [Suspect]
     Dosage: 904 MG
     Dates: end: 20080624
  3. ELOXATIN [Suspect]
     Dosage: 192 MG
     Dates: end: 20080624
  4. FLUOROURACIL [Suspect]
     Dosage: 6328 MG
     Dates: end: 20080624

REACTIONS (2)
  - COLON CANCER METASTATIC [None]
  - LOWER GASTROINTESTINAL HAEMORRHAGE [None]
